FAERS Safety Report 5073921-7 (Version None)
Quarter: 2006Q3

REPORT INFORMATION
  Report Type: 
  Country: None (occurrence: None)
  Receive Date: 20060808
  Receipt Date: 20050609
  Transmission Date: 20061208
  Serious: No
  Sender: FDA-Public Use
  Company Number: US-AMGEN-US138027

PATIENT
  Age: 37 Year
  Sex: Female

DRUGS (2)
  1. EPOGEN [Suspect]
     Indication: RENAL FAILURE CHRONIC
     Dates: start: 19930101
  2. EPOGEN [Suspect]
     Indication: RENAL TRANSPLANT

REACTIONS (4)
  - ERYTHEMA INFECTIOSUM [None]
  - KIDNEY TRANSPLANT REJECTION [None]
  - NORMOCHROMIC NORMOCYTIC ANAEMIA [None]
  - THERAPEUTIC RESPONSE DECREASED [None]
